FAERS Safety Report 7269441-1 (Version None)
Quarter: 2011Q1

REPORT INFORMATION
  Report Type: 
  Country: None (occurrence: None)
  Receive Date: 20110125
  Receipt Date: 20110112
  Transmission Date: 20110831
  Serious: Yes (Hospitalization)
  Sender: FDA-Public Use
  Company Number: CERZ-1000005

PATIENT
  Age: 36 Year
  Sex: Female

DRUGS (8)
  1. DEXTROPROPOXYPHENE (DEXTROPROPOXYPHENE) [Concomitant]
  2. CEREZYME [Suspect]
     Indication: GAUCHER'S DISEASE
     Dosage: SEE IMAGE
     Route: 042
     Dates: start: 20070101
  3. CEREZYME [Suspect]
     Indication: GAUCHER'S DISEASE
     Dosage: SEE IMAGE
     Route: 042
     Dates: end: 20040101
  4. CEREZYME [Suspect]
     Indication: GAUCHER'S DISEASE
     Dosage: SEE IMAGE
     Route: 042
     Dates: start: 20040101, end: 20070101
  5. CEREZYME [Suspect]
     Indication: GAUCHER'S DISEASE
     Dosage: SEE IMAGE
     Route: 042
     Dates: start: 19961211
  6. PARACETAMOL (PROMETHAZINE HYDROCHLORIDE) [Concomitant]
  7. MIGLUSTAT (MIGLUSTAT) [Suspect]
     Indication: GAUCHER'S DISEASE
     Dosage: 300 MG, QD, ORAL
     Route: 048
     Dates: start: 20060101, end: 20070101
  8. TRAMADOL HCL [Concomitant]

REACTIONS (3)
  - TREMOR [None]
  - BONE INFARCTION [None]
  - ASTHENIA [None]
